FAERS Safety Report 13625435 (Version 2)
Quarter: 2017Q2

REPORT INFORMATION
  Report Type: Report from Study
  Country: US (occurrence: US)
  Receive Date: 20170608
  Receipt Date: 20170628
  Transmission Date: 20170830
  Serious: Yes (Hospitalization)
  Sender: FDA-Public Use
  Company Number: US-ROCHE-1943749

PATIENT
  Sex: Female

DRUGS (5)
  1. ATEZOLIZUMAB [Suspect]
     Active Substance: ATEZOLIZUMAB
     Indication: NEOPLASM
     Dosage: ON DAY 1 AND DAY 15 IN A 28-DAY CYCLE.?MOST RECENT DOSE ON 01/JUN/2017
     Route: 042
  2. LOVENOX [Concomitant]
     Active Substance: ENOXAPARIN SODIUM
     Indication: DEEP VEIN THROMBOSIS
  3. SYNTHROID [Concomitant]
     Active Substance: LEVOTHYROXINE SODIUM
     Indication: HYPOTHYROIDISM
  4. COBIMETINIB [Suspect]
     Active Substance: COBIMETINIB
     Indication: NEOPLASM
     Dosage: ON DAYS 1-21 IN A 28-DAY CYCLE.
     Route: 048
  5. PANTOPRAZOLE [Concomitant]
     Active Substance: PANTOPRAZOLE
     Route: 065

REACTIONS (2)
  - Infection [Unknown]
  - Infestation [Unknown]

NARRATIVE: CASE EVENT DATE: 20170531
